FAERS Safety Report 9312520 (Version 1)
Quarter: 2013Q2

REPORT INFORMATION
  Report Type: Spontaneous
  Country: DK (occurrence: DK)
  Receive Date: 20130528
  Receipt Date: 20130528
  Transmission Date: 20140414
  Serious: Yes (Other)
  Sender: FDA-Public Use
  Company Number: DK-WATSON-2013-09747

PATIENT
  Sex: Female

DRUGS (5)
  1. DIAZEPAM (UNKNOWN) [Suspect]
     Indication: ANXIETY
     Dosage: 8 MG, DAILY
     Route: 065
     Dates: start: 20130220
  2. CENTYL MED KALIUMKLORID [Concomitant]
     Indication: PRODUCT USED FOR UNKNOWN INDICATION
     Dosage: 2 DF, DAILY
     Route: 065
  3. RAMIPRIL [Concomitant]
     Indication: PRODUCT USED FOR UNKNOWN INDICATION
     Dosage: 10 MG, DAILY
     Route: 065
  4. FELODIPINE [Concomitant]
     Indication: HYPERTENSION
     Dosage: 5 MG, BID
     Route: 065
  5. KODEIN [Concomitant]
     Indication: FIBROMYALGIA
     Route: 065

REACTIONS (2)
  - Walking disability [Unknown]
  - Blood pressure increased [Unknown]
